FAERS Safety Report 8892339 (Version 1)
Quarter: 2012Q4

REPORT INFORMATION
  Report Type: 
  Country: US (occurrence: US)
  Receive Date: 20121107
  Receipt Date: 20121107
  Transmission Date: 20130627
  Serious: No
  Sender: FDA-Public Use
  Company Number: US-AMGEN-USASP2011057458

PATIENT
  Age: 58 Year
  Sex: Female

DRUGS (4)
  1. ENBREL [Suspect]
     Indication: RHEUMATOID ARTHRITIS
     Dosage: 50 mg, qwk
     Dates: start: 20110502
  2. PLAQUENIL                          /00072602/ [Concomitant]
     Dosage: 1 mg, qd
     Dates: start: 20110602
  3. METHOTREXATE [Concomitant]
     Dosage: 1 mg, qwk
     Dates: start: 2010
  4. BENADRYL                           /00000402/ [Concomitant]

REACTIONS (2)
  - Rheumatoid arthritis [Not Recovered/Not Resolved]
  - Pruritus [Recovered/Resolved]
